FAERS Safety Report 8058255-0 (Version None)
Quarter: 2012Q1

REPORT INFORMATION
  Report Type: 
  Country: None (occurrence: None)
  Receive Date: 20120112
  Receipt Date: 20120102
  Transmission Date: 20120608
  Serious: Yes (Other)
  Sender: FDA-Public Use
  Company Number: 2011SP028009

PATIENT
  Age: 5 Year
  Sex: Male
  Weight: 17.5 kg

DRUGS (2)
  1. NOVORAPID [Concomitant]
  2. BETAMETHASONE SODIUM PHOSPHATE [Suspect]
     Indication: INFLUENZA LIKE ILLNESS
     Dosage: 60 GTT; BID; PO
     Route: 048
     Dates: start: 20110615, end: 20110615

REACTIONS (1)
  - HYPERGLYCAEMIA [None]
